FAERS Safety Report 5207628-X (Version None)
Quarter: 2007Q1

REPORT INFORMATION
  Report Type: 
  Country: None (occurrence: None)
  Receive Date: 20070112
  Receipt Date: 20061222
  Transmission Date: 20070707
  Serious: Yes (Hospitalization, Other)
  Sender: FDA-Public Use
  Company Number: US-PFIZER INC-2006079105

PATIENT
  Sex: Male
  Weight: 86.2 kg

DRUGS (6)
  1. BEXTRA [Suspect]
     Indication: ARTHRITIS ENTEROPATHIC
     Route: 048
  2. BEXTRA [Suspect]
     Indication: COLITIS ULCERATIVE
  3. CELEBREX [Concomitant]
     Indication: ARTHRITIS ENTEROPATHIC
     Route: 048
     Dates: start: 20020114, end: 20021031
  4. CELEBREX [Concomitant]
     Indication: COLITIS ULCERATIVE
  5. AZULFIDINE [Concomitant]
     Indication: COLITIS ULCERATIVE
     Route: 048
     Dates: end: 20021031
  6. FLEXERIL [Concomitant]
     Route: 048

REACTIONS (1)
  - STEVENS-JOHNSON SYNDROME [None]
